FAERS Safety Report 13740667 (Version 2)
Quarter: 2017Q3

REPORT INFORMATION
  Report Type: Spontaneous
  Country: US (occurrence: US)
  Receive Date: 20170711
  Receipt Date: 20170802
  Transmission Date: 20171127
  Serious: Yes (Other)
  Sender: FDA-Public Use
  Company Number: US-WEST-WARD PHARMACEUTICALS CORP.-US-H14001-17-02312

PATIENT
  Age: 70 Year

DRUGS (1)
  1. ISONIAZID. [Suspect]
     Active Substance: ISONIAZID
     Indication: ANTIBIOTIC PROPHYLAXIS
     Route: 065

REACTIONS (5)
  - Alanine aminotransferase increased [Unknown]
  - Nausea [Recovered/Resolved]
  - Toxicity to various agents [Recovering/Resolving]
  - Aspartate aminotransferase increased [Recovering/Resolving]
  - Smooth muscle antibody positive [Unknown]

NARRATIVE: CASE EVENT DATE: 201706
